FAERS Safety Report 10376425 (Version 1)
Quarter: 2014Q3

REPORT INFORMATION
  Report Type: Spontaneous
  Country: US (occurrence: US)
  Receive Date: 20140811
  Receipt Date: 20140811
  Transmission Date: 20150326
  Serious: Yes (Hospitalization, Other)
  Sender: FDA-Public Use
  Company Number: US-BAYER-2014-116310

PATIENT
  Age: 50 Year
  Sex: Female

DRUGS (1)
  1. BETASERON [Suspect]
     Active Substance: INTERFERON BETA-1B
     Indication: MULTIPLE SCLEROSIS
     Dosage: UNK
     Dates: start: 20080717, end: 20140711

REACTIONS (7)
  - Myocardial infarction [Recovered/Resolved]
  - Bladder cyst [Recovered/Resolved]
  - Peripheral arterial occlusive disease [Recovered/Resolved]
  - Memory impairment [None]
  - Myocardial infarction [Recovered/Resolved]
  - Fatigue [None]
  - Incontinence [None]

NARRATIVE: CASE EVENT DATE: 201111
